FAERS Safety Report 6763009-9 (Version None)
Quarter: 2010Q2

REPORT INFORMATION
  Report Type: 
  Country: None (occurrence: None)
  Receive Date: 20100609
  Receipt Date: 20100604
  Transmission Date: 20101027
  Serious: Yes (Death)
  Sender: FDA-Public Use
  Company Number: GB-ROCHE-706088

PATIENT
  Age: 20 Year
  Sex: Male
  Weight: 60 kg

DRUGS (2)
  1. ISOTRETINOIN [Suspect]
     Indication: ACNE
     Route: 048
     Dates: start: 20100330, end: 20100505
  2. ERYTHROMYCIN [Concomitant]
     Route: 048
     Dates: start: 20100330, end: 20100505

REACTIONS (1)
  - COMPLETED SUICIDE [None]
